FAERS Safety Report 6217945-2 (Version None)
Quarter: 2009Q2

REPORT INFORMATION
  Report Type: 
  Country: None (occurrence: None)
  Receive Date: 20090604
  Receipt Date: 20090604
  Transmission Date: 20091009
  Serious: No
  Sender: FDA-Public Use
  Company Number: None

PATIENT
  Age: 82 Year
  Sex: Male

DRUGS (1)
  1. ADROGEL PUMP 1% 75 GM LBI/ULMED [Suspect]
     Indication: BLOOD TESTOSTERONE DECREASED
     Dosage: 4 PUMPS DAILY, APPLYING TO OUTER ARM AND SHOULDER
     Dates: start: 20081125

REACTIONS (1)
  - PRODUCT QUALITY ISSUE [None]
